FAERS Safety Report 10356309 (Version 7)
Quarter: 2016Q2

REPORT INFORMATION
  Report Type: Spontaneous
  Country: CA (occurrence: CA)
  Receive Date: 20140801
  Receipt Date: 20160516
  Transmission Date: 20160815
  Serious: Yes (Hospitalization, Other)
  Sender: FDA-Public Use
  Company Number: CA-ROCHE-1443486

PATIENT
  Age: 64 Year
  Sex: Female

DRUGS (12)
  1. VENTOLIN [Concomitant]
     Active Substance: ALBUTEROL SULFATE
  2. CETIRIZINE [Concomitant]
     Active Substance: CETIRIZINE HYDROCHLORIDE
     Route: 065
  3. BENADRYL [Concomitant]
     Active Substance: DIPHENHYDRAMINE HYDROCHLORIDE
  4. REACTINE (CANADA) [Concomitant]
     Active Substance: CETIRIZINE HYDROCHLORIDE
     Route: 065
     Dates: start: 20130904
  5. SALMETEROL [Concomitant]
     Active Substance: SALMETEROL
  6. XOLAIR [Suspect]
     Active Substance: OMALIZUMAB
     Route: 058
     Dates: start: 20160420
  7. PREDNISONE. [Concomitant]
     Active Substance: PREDNISONE
  8. XOLAIR [Suspect]
     Active Substance: OMALIZUMAB
     Indication: ASTHMA
     Route: 058
     Dates: start: 20130904
  9. XOLAIR [Suspect]
     Active Substance: OMALIZUMAB
     Route: 058
     Dates: start: 20130918
  10. XOLAIR [Suspect]
     Active Substance: OMALIZUMAB
     Route: 058
     Dates: start: 20160504
  11. SPIRIVA [Concomitant]
     Active Substance: TIOTROPIUM BROMIDE MONOHYDRATE
  12. ALVESCO [Concomitant]
     Active Substance: CICLESONIDE

REACTIONS (21)
  - Pruritus [Unknown]
  - Nasal pruritus [Unknown]
  - Injection site pain [Unknown]
  - Feeling abnormal [Unknown]
  - Malaise [Unknown]
  - Agitation [Unknown]
  - Mycotic allergy [Unknown]
  - Respiratory tract infection viral [Unknown]
  - Injection site hypersensitivity [Unknown]
  - Mood swings [Unknown]
  - Seasonal allergy [Unknown]
  - Photophobia [Unknown]
  - Insomnia [Unknown]
  - Eye irritation [Unknown]
  - Hypersensitivity [Unknown]
  - Irritability [Unknown]
  - Restlessness [Unknown]
  - Discomfort [Unknown]
  - Asthma [Unknown]
  - Epistaxis [Unknown]
  - Headache [Unknown]

NARRATIVE: CASE EVENT DATE: 20130904
